FAERS Safety Report 8814011 (Version 1)
Quarter: 2012Q4

REPORT INFORMATION
  Report Type: 
  Country: US (occurrence: US)
  Receive Date: 20120928
  Receipt Date: 20120928
  Transmission Date: 20130627
  Serious: Yes (Hospitalization, Other)
  Sender: FDA-Public Use
  Company Number: US-PFIZER INC-2012238110

PATIENT
  Age: 69 Year
  Sex: Male

DRUGS (1)
  1. CELECOXIB [Suspect]
     Indication: BACK PAIN
     Dosage: UNK

REACTIONS (1)
  - Gastrointestinal haemorrhage [Unknown]
